FAERS Safety Report 11495941 (Version 2)
Quarter: 2015Q4

REPORT INFORMATION
  Report Type: Spontaneous
  Country: US (occurrence: US)
  Receive Date: 20150911
  Receipt Date: 20151014
  Transmission Date: 20160304
  Serious: Yes (Other)
  Sender: FDA-Public Use
  Company Number: US-GLAXOSMITHKLINE-US2015128944

PATIENT
  Weight: 67.12 kg

DRUGS (4)
  1. BENLYSTA [Suspect]
     Active Substance: BELIMUMAB
     Indication: SYSTEMIC LUPUS ERYTHEMATOSUS
  2. ARAVA [Suspect]
     Active Substance: LEFLUNOMIDE
     Indication: PRODUCT USED FOR UNKNOWN INDICATION
  3. PENTASA [Concomitant]
     Active Substance: MESALAMINE
  4. BENLYSTA [Suspect]
     Active Substance: BELIMUMAB
     Indication: AUTOIMMUNE HEPATITIS
     Dosage: 660 MG,  EVERY 4 WEEKS
     Route: 042
     Dates: start: 20141212, end: 20150317

REACTIONS (10)
  - Macrocytosis [Unknown]
  - Leukopenia [Recovered/Resolved]
  - Off label use [Unknown]
  - Neutropenia [Unknown]
  - Anaemia [Recovered/Resolved]
  - Adverse event [Unknown]
  - Alanine aminotransferase increased [Unknown]
  - Hepatic enzyme increased [Unknown]
  - Drug metabolising enzyme test abnormal [Recovering/Resolving]
  - Blood iron increased [Unknown]
